FAERS Safety Report 5995238-6 (Version None)
Quarter: 2008Q4

REPORT INFORMATION
  Report Type: 
  Country: None (occurrence: None)
  Receive Date: 20081210
  Receipt Date: 20081203
  Transmission Date: 20090506
  Serious: Yes (Death)
  Sender: FDA-Public Use
  Company Number: 2008JP005416

PATIENT
  Age: 23 Year
  Sex: Male

DRUGS (20)
  1. FK463(MICAFUNGIN) INJECTION [Suspect]
     Dosage: IV NOS
     Route: 042
     Dates: start: 20081106, end: 20081113
  2. ANAPROX (NAPROXEN SODIUM) PER ORAL NOS [Concomitant]
  3. BROMHEXINE (BROMHEXINE) INJECTION [Concomitant]
  4. CODEINE PHOSPHATE PER ORAL NOS [Concomitant]
  5. BENPROPERINE PHOSPHATE (BENPROPERINE PHOSPHATE) PER ORAL NOS [Concomitant]
  6. LEVOFLOXACIN [Concomitant]
  7. CURAN (RANITIDINE HYDROCHLORIDE) INJECTION [Concomitant]
  8. DENOGAN (PROPACETAMOL HYDROCHLORIDE) INJECTION [Concomitant]
  9. GRASTIN (FILGRASTIM) INJECTION [Concomitant]
  10. PENIRAMINE INJECTION [Concomitant]
  11. TAZOPER (PIPERACILLIN SODIUM, TAZOBACTAM SODIUM) INJECTION [Concomitant]
  12. TRAMADOL (TRAMADOL) INJECTION [Concomitant]
  13. VANCOMYCIN [Concomitant]
  14. ZYLORIC PER ORAL NOS [Concomitant]
  15. AMINOPHYLLINE (AMINOPHYLLINE) PER ORAL NOS [Concomitant]
  16. CORTICOSTEROIDS INJECTION [Concomitant]
  17. THEOPHYLLINE PER ORAL NOS [Concomitant]
  18. FUNGIZONE INJECTION [Concomitant]
  19. TRANSAMINE (TRANEXAMIC ACID) INJECTION [Concomitant]
  20. TYRENOL (ASTEMIZOLE) PER ORAL NOS [Concomitant]

REACTIONS (3)
  - ACUTE MYELOID LEUKAEMIA [None]
  - BLOOD BILIRUBIN INCREASED [None]
  - CONDITION AGGRAVATED [None]
